FAERS Safety Report 11135474 (Version 2)
Quarter: 2015Q3

REPORT INFORMATION
  Report Type: Spontaneous
  Country: US (occurrence: None)
  Receive Date: 20150521
  Receipt Date: 20150902
  Transmission Date: 20151125
  Serious: Yes (Hospitalization, Other)
  Sender: FDA-Public Use
  Company Number: PIN-2015-00022

PATIENT
  Sex: 0

DRUGS (1)
  1. PHOTOFRIN [Suspect]
     Active Substance: PORFIMER SODIUM
     Indication: PLEURAL MESOTHELIOMA MALIGNANT
     Route: 042

REACTIONS (19)
  - Thrombosis [None]
  - Neuropathy peripheral [None]
  - Post procedural complication [None]
  - Dyspnoea [None]
  - Lower gastrointestinal haemorrhage [None]
  - Hypotension [None]
  - Nausea [None]
  - Weight decreased [None]
  - Medical device site reaction [None]
  - Pulmonary air leakage [None]
  - Oedema peripheral [None]
  - Neuralgia [None]
  - Incision site pain [None]
  - Fatigue [None]
  - Pleural mesothelioma malignant [None]
  - Erythema [None]
  - Insomnia [None]
  - Constipation [None]
  - Malignant neoplasm progression [None]

NARRATIVE: CASE EVENT DATE: 20150327
